FAERS Safety Report 6450744-5 (Version None)
Quarter: 2009Q4

REPORT INFORMATION
  Report Type: 
  Country: None (occurrence: None)
  Receive Date: 20091120
  Receipt Date: 20091120
  Transmission Date: 20100525
  Serious: No
  Sender: FDA-Public Use
  Company Number: None

PATIENT
  Age: 68 Year
  Sex: Male
  Weight: 125.65 kg

DRUGS (1)
  1. CHLORTHALIDONE [Suspect]
     Dosage: 25 MG EVERY DAY PO
     Route: 048
     Dates: start: 20081117, end: 20081202

REACTIONS (2)
  - ACTIVITIES OF DAILY LIVING IMPAIRED [None]
  - POLLAKIURIA [None]
